FAERS Safety Report 6436269-1 (Version None)
Quarter: 2009Q4

REPORT INFORMATION
  Report Type: 
  Country: None (occurrence: None)
  Receive Date: 20091111
  Receipt Date: 20091109
  Transmission Date: 20100525
  Serious: Yes (Hospitalization)
  Sender: FDA-Public Use
  Company Number: A0810763A

PATIENT
  Age: 86 Year
  Sex: Male

DRUGS (9)
  1. ADVAIR DISKUS 100/50 [Suspect]
     Indication: CHRONIC OBSTRUCTIVE PULMONARY DISEASE
     Route: 055
     Dates: start: 20070101
  2. NARCOTICS [Suspect]
     Indication: DRUG USE FOR UNKNOWN INDICATION
     Route: 065
  3. COUMADIN [Concomitant]
  4. FUROSEMIDE [Concomitant]
  5. SPIRONOLACTONE [Concomitant]
  6. IRON [Concomitant]
  7. OXYCODONE HCL [Concomitant]
  8. OMEPRAZOLE [Concomitant]
  9. WARFARIN SODIUM [Concomitant]

REACTIONS (6)
  - ABNORMAL DREAMS [None]
  - DRUG ADMINISTRATION ERROR [None]
  - FALL [None]
  - RIB FRACTURE [None]
  - SYNCOPE [None]
  - UPPER LIMB FRACTURE [None]
